FAERS Safety Report 9135130 (Version 1)
Quarter: 2013Q1

REPORT INFORMATION
  Report Type: Spontaneous
  Country: FR (occurrence: FR)
  Receive Date: 20130304
  Receipt Date: 20130304
  Transmission Date: 20140127
  Serious: Yes (Hospitalization)
  Sender: FDA-Public Use
  Company Number: FR-009507513-1302FRA011449

PATIENT
  Age: 26 Year
  Sex: Male

DRUGS (7)
  1. TIENAM 500MG/500MG, POUDRE POUR PERFUSION [Suspect]
     Indication: URINARY TRACT INFECTION
     Dosage: UNK
     Route: 042
     Dates: start: 20120622, end: 20120629
  2. GENTAMICIN SULFATE [Suspect]
     Indication: URINARY TRACT INFECTION
     Dosage: UNK
     Route: 042
     Dates: start: 20120622, end: 20120629
  3. DEROXAT [Concomitant]
     Dosage: UNK
     Route: 048
     Dates: start: 20120615
  4. SOLIAN [Concomitant]
     Dosage: UNK
     Route: 048
     Dates: start: 20120615
  5. STILNOX [Concomitant]
     Dosage: UNK
     Route: 048
     Dates: start: 20120615
  6. VALIUM [Concomitant]
     Dosage: UNK
     Route: 048
     Dates: start: 20120615
  7. LOXAPAC (LOXAPINE SUCCINATE) [Concomitant]
     Dosage: UNK, PRN
     Route: 048
     Dates: start: 20120615

REACTIONS (1)
  - Hepatocellular injury [Recovered/Resolved]
